FAERS Safety Report 10189049 (Version 2)
Quarter: 2014Q2

REPORT INFORMATION
  Report Type: Spontaneous
  Country: US (occurrence: US)
  Receive Date: 20140522
  Receipt Date: 20140603
  Transmission Date: 20141212
  Serious: No
  Sender: FDA-Public Use
  Company Number: US-009507513-1405USA011391

PATIENT
  Sex: Female
  Weight: 47.62 kg

DRUGS (3)
  1. OXYTROL FOR WOMEN [Suspect]
     Indication: POLLAKIURIA
     Dosage: UNK, UNKNOWN
     Route: 062
     Dates: start: 20140313, end: 20140503
  2. FORTEO [Concomitant]
     Indication: OSTEOPOROSIS
     Dosage: UNK, UNKNOWN
  3. LOSARTAN POTASSIUM [Concomitant]
     Indication: HYPERTENSION
     Dosage: 25 MG, UNKNOWN

REACTIONS (3)
  - Urticaria [Recovered/Resolved]
  - Rash [Unknown]
  - Drug ineffective [Unknown]
